FAERS Safety Report 7033350 (Version 3)
Quarter: 2012Q4

REPORT INFORMATION
  Report Type: Report from Study
  Country: GB (occurrence: GB)
  Receive Date: 20090625
  Receipt Date: 20120831
  Transmission Date: 20130627
  Serious: Yes (Other)
  Sender: FDA-Public Use
  Company Number: GB-ABBOTT-09P-167-0579864-00

PATIENT
  Age: 66 Year
  Sex: Male
  Weight: 88 kg

DRUGS (10)
  1. HUMIRA 40 MG/ 0.8 ML PRE-FILLED SYRINGE [Suspect]
     Indication: RHEUMATOID ARTHRITIS
     Route: 058
     Dates: start: 20060602, end: 20090427
  2. METHOTREXATE [Concomitant]
     Indication: PRODUCT USED FOR UNKNOWN INDICATION
     Dates: start: 20060612, end: 20090427
  3. PREDNISOLONE [Concomitant]
     Indication: PRODUCT USED FOR UNKNOWN INDICATION
     Dates: start: 20060612
  4. DICLOFENAC [Concomitant]
     Indication: PRODUCT USED FOR UNKNOWN INDICATION
     Dates: start: 20060612
  5. FOLIC ACID [Concomitant]
     Indication: PRODUCT USED FOR UNKNOWN INDICATION
     Dates: start: 20060612
  6. PARACETAMOL [Concomitant]
     Indication: PRODUCT USED FOR UNKNOWN INDICATION
     Route: 048
  7. CLARITHROMYCIN MR [Concomitant]
     Indication: PRODUCT USED FOR UNKNOWN INDICATION
     Route: 048
  8. RIFATER [Concomitant]
     Indication: ANTIBIOTIC PROPHYLAXIS
     Dates: start: 20090710, end: 20100811
  9. ETHAMBUTOL [Concomitant]
     Indication: ANTIBIOTIC PROPHYLAXIS
     Dates: start: 20090710, end: 20100811
  10. PYRIDOXINE [Concomitant]
     Indication: ANTIBIOTIC PROPHYLAXIS
     Dates: start: 20090710, end: 20100811

REACTIONS (1)
  - Tuberculosis [Unknown]
